FAERS Safety Report 5428134-3 (Version None)
Quarter: 2007Q3

REPORT INFORMATION
  Report Type: 
  Country: None (occurrence: None)
  Receive Date: 20070828
  Receipt Date: 20070827
  Transmission Date: 20080115
  Serious: No
  Sender: FDA-Public Use
  Company Number: US-BOEHRINGER INGELHEIM PHARMACEUTICALS, INC.-2007-BP-17860BP

PATIENT
  Sex: Male

DRUGS (7)
  1. FLOMAX [Suspect]
     Indication: BENIGN PROSTATIC HYPERPLASIA
     Route: 048
     Dates: start: 20060201
  2. SYNTHROID [Suspect]
  3. NEXIUM [Concomitant]
  4. PROPECIA [Concomitant]
  5. WARFARIN [Concomitant]
  6. LIPITOR [Concomitant]
  7. CELEBREX [Concomitant]

REACTIONS (3)
  - COAGULOPATHY [None]
  - CONTUSION [None]
  - FALL [None]
